FAERS Safety Report 7682872-0 (Version None)
Quarter: 2011Q3

REPORT INFORMATION
  Report Type: 
  Country: None (occurrence: None)
  Receive Date: 20110815
  Receipt Date: 20110801
  Transmission Date: 20111222
  Serious: Yes (Hospitalization, Other)
  Sender: FDA-Public Use
  Company Number: JP-MYLANLABS-2011S1016383

PATIENT
  Age: 53 Year
  Sex: Male
  Weight: 82 kg

DRUGS (8)
  1. METHOTREXATE [Suspect]
     Route: 048
     Dates: start: 20080107
  2. BLINDED STUDY MEDICATION [Suspect]
     Indication: RHEUMATOID ARTHRITIS
  3. PREDNISOLONE [Concomitant]
     Indication: PRODUCT USED FOR UNKNOWN INDICATION
     Dates: start: 20080701
  4. LANSOPRAZOLE [Concomitant]
     Indication: PRODUCT USED FOR UNKNOWN INDICATION
     Dates: start: 20080701
  5. LOXOPROFEN SODIUM [Concomitant]
     Indication: PRODUCT USED FOR UNKNOWN INDICATION
     Dates: start: 20080701
  6. METHOTREXATE [Suspect]
     Indication: RHEUMATOID ARTHRITIS
     Route: 048
     Dates: start: 20080516, end: 20110519
  7. FOLIC ACID [Concomitant]
     Indication: PRODUCT USED FOR UNKNOWN INDICATION
     Dates: start: 20080701
  8. TEPRENONE [Concomitant]
     Indication: PRODUCT USED FOR UNKNOWN INDICATION
     Dates: start: 20080701

REACTIONS (2)
  - SMALL CELL LUNG CANCER STAGE UNSPECIFIED [None]
  - GLOMERULONEPHRITIS MEMBRANOUS [None]
